FAERS Safety Report 12654797 (Version 1)
Quarter: 2016Q3

REPORT INFORMATION
  Report Type: Spontaneous
  Country: US (occurrence: None)
  Receive Date: 20160815
  Receipt Date: 20160815
  Transmission Date: 20161109
  Serious: Yes (Death)
  Sender: FDA-Public Use
  Company Number: None

PATIENT
  Sex: Male

DRUGS (1)
  1. FERROUS SULFATE, 325 MG/TABLET [Suspect]
     Active Substance: FERROUS SULFATE
     Indication: CYSTIC FIBROSIS
     Route: 048
     Dates: start: 20160502, end: 20160623

REACTIONS (1)
  - Death [None]
